FAERS Safety Report 20532100 (Version 1)
Quarter: 2022Q1

REPORT INFORMATION
  Report Type: Spontaneous
  Country: FR (occurrence: None)
  Receive Date: 20220301
  Receipt Date: 20220301
  Transmission Date: 20220424
  Serious: Yes (Other)
  Sender: FDA-Public Use
  Company Number: None

PATIENT
  Age: 80 Year
  Sex: Female

DRUGS (3)
  1. PROPOFOL [Suspect]
     Active Substance: PROPOFOL
     Indication: Anaesthesia
     Route: 041
     Dates: start: 20210107, end: 20210107
  2. ROCURONIUM BROMIDE [Suspect]
     Active Substance: ROCURONIUM BROMIDE
     Indication: Anaesthesia
     Route: 041
     Dates: start: 20210107, end: 20210107
  3. KETAMINE [Suspect]
     Active Substance: KETAMINE
     Indication: Anaesthesia
     Route: 041
     Dates: start: 20210107, end: 20210107

REACTIONS (1)
  - Anaphylactic shock [Recovered/Resolved]

NARRATIVE: CASE EVENT DATE: 20210107
